FAERS Safety Report 5818252-X (Version None)
Quarter: 2008Q3

REPORT INFORMATION
  Report Type: 
  Country: None (occurrence: None)
  Receive Date: 20080722
  Receipt Date: 20080715
  Transmission Date: 20090109
  Serious: Yes (Disabling)
  Sender: FDA-Public Use
  Company Number: GB-PFIZER INC-2008059419

PATIENT
  Age: 35 Year
  Sex: Female

DRUGS (2)
  1. CHANTIX [Suspect]
     Indication: SMOKING CESSATION THERAPY
     Route: 048
     Dates: start: 20080512, end: 20080616
  2. MICROGYNON [Concomitant]
     Indication: CONTRACEPTION
     Route: 048

REACTIONS (3)
  - AGGRESSION [None]
  - DEPRESSED MOOD [None]
  - TEARFULNESS [None]
